FAERS Safety Report 8169085-3 (Version None)
Quarter: 2012Q1

REPORT INFORMATION
  Report Type: 
  Country: None (occurrence: None)
  Receive Date: 20120227
  Receipt Date: 20120222
  Transmission Date: 20120608
  Serious: Yes (Life-Threatening, Other)
  Sender: FDA-Public Use
  Company Number: RU-ASTRAZENECA-2010SE17697

PATIENT
  Age: 79 Year
  Sex: Female
  Weight: 70 kg

DRUGS (5)
  1. MONOCINQUE RETARD [Concomitant]
     Indication: CORONARY ARTERY DISEASE
     Route: 048
     Dates: start: 20100313
  2. METOPROLOL SUCCINATE [Suspect]
     Indication: CORONARY ARTERY DISEASE
     Route: 048
     Dates: start: 20100410, end: 20100412
  3. OTIPAX [Concomitant]
     Indication: HYPOACUSIS
     Dates: start: 20100323, end: 20100412
  4. CROMOHEXAL [Concomitant]
     Indication: RHINITIS
     Route: 045
     Dates: start: 20100323, end: 20100412
  5. TAUFONE [Concomitant]
     Indication: CATARACT
     Route: 031
     Dates: start: 20100323, end: 20100412

REACTIONS (1)
  - ANGIOEDEMA [None]
